FAERS Safety Report 4317021-X (Version None)
Quarter: 2004Q1

REPORT INFORMATION
  Report Type: 
  Country: None (occurrence: None)
  Receive Date: 20040312
  Receipt Date: 20040302
  Transmission Date: 20041129
  Serious: Yes (Death)
  Sender: FDA-Public Use
  Company Number: US-JNJFOC-20040300818

PATIENT
  Age: 71 Year
  Sex: Male

DRUGS (2)
  1. DURAGESIC [Suspect]
     Indication: CANCER PAIN
     Dosage: 25 UG/HR, 1 IN 72 HOUR, TRANSDERMAL; 50 UG/HR, 1 IN 72 HOUR, TRANSDERMAL
     Route: 062
     Dates: start: 20040101, end: 20040101
  2. DURAGESIC [Suspect]
     Indication: CANCER PAIN
     Dosage: 25 UG/HR, 1 IN 72 HOUR, TRANSDERMAL; 50 UG/HR, 1 IN 72 HOUR, TRANSDERMAL
     Route: 062
     Dates: start: 20040101

REACTIONS (2)
  - HEADACHE [None]
  - METASTATIC NEOPLASM [None]
